FAERS Safety Report 14901068 (Version 1)
Quarter: 2018Q2

REPORT INFORMATION
  Report Type: Spontaneous
  Country: US (occurrence: US)
  Receive Date: 20180516
  Receipt Date: 20180516
  Transmission Date: 20180711
  Serious: No
  Sender: FDA-Public Use
  Company Number: US-SA-2017SA220415

PATIENT
  Sex: Male

DRUGS (4)
  1. APIDRA SOLOSTAR [Suspect]
     Active Substance: INSULIN GLULISINE
     Dosage: SLIDING SCALE WITH MEALS
     Route: 058
     Dates: start: 2015
  2. SOLOSTAR [Suspect]
     Active Substance: DEVICE
     Dates: start: 2015
  3. TOUJEO [Suspect]
     Active Substance: INSULIN GLARGINE
     Route: 051
     Dates: start: 2015
  4. SOLOSTAR [Suspect]
     Active Substance: DEVICE

REACTIONS (3)
  - Incorrect dose administered [Unknown]
  - Blood glucose decreased [Unknown]
  - Intentional product misuse [Unknown]
